FAERS Safety Report 8252342-X (Version None)
Quarter: 2012Q2

REPORT INFORMATION
  Report Type: 
  Country: None (occurrence: None)
  Receive Date: 20120402
  Receipt Date: 20110513
  Transmission Date: 20120825
  Serious: No
  Sender: FDA-Public Use
  Company Number: US-ABBOTT-11P-163-0804573-00

PATIENT
  Age: 63 Year
  Sex: Male
  Weight: 76.363 kg

DRUGS (6)
  1. TESTOSTERONE [Suspect]
     Indication: BLOOD TESTOSTERONE DECREASED
     Dosage: DAILY DOSE: 5 GRAM(S), PACKETS
     Route: 062
     Dates: start: 20110401, end: 20110501
  2. TESTOSTERONE [Suspect]
     Dosage: DAILY DOSE: 10 GRAM(S), VIA PUMP
     Route: 062
     Dates: start: 20110501, end: 20110501
  3. LOSARTAN POTASSIUM [Concomitant]
     Indication: PRODUCT USED FOR UNKNOWN INDICATION
     Dosage: DAILY DOSE:  UNKNOWN
     Route: 065
  4. AZATHIOPRINE [Concomitant]
     Indication: PRODUCT USED FOR UNKNOWN INDICATION
     Dosage: DAILY DOSE:  UNKNOWN
     Route: 065
  5. GABAPENTIN [Concomitant]
     Indication: RESTLESS LEGS SYNDROME
     Dosage: DAILY DOSE:  UNKNOWN
     Route: 065
  6. TESTOSTERONE [Suspect]
     Dosage: DAILY DOSE: 7.5 GRAM(S), VIA PUMP
     Route: 062
     Dates: start: 20110501

REACTIONS (4)
  - SLEEP APNOEA SYNDROME [None]
  - SNORING [None]
  - DISEASE RECURRENCE [None]
  - HOT FLUSH [None]
